FAERS Safety Report 7764748-3 (Version None)
Quarter: 2011Q3

REPORT INFORMATION
  Report Type: 
  Country: None (occurrence: None)
  Receive Date: 20110921
  Receipt Date: 20110921
  Transmission Date: 20111222
  Serious: Yes (Life-Threatening, Disabling, Other)
  Sender: FDA-Public Use
  Company Number: None

PATIENT
  Age: 55 Year
  Sex: Female
  Weight: 59.874 kg

DRUGS (1)
  1. AMOXICILLIN [Suspect]
     Indication: ENDODONTIC PROCEDURE
     Dosage: 500 MG
     Route: 048
     Dates: start: 20110909, end: 20110915

REACTIONS (17)
  - CANDIDIASIS [None]
  - BACK PAIN [None]
  - CONTUSION [None]
  - OROPHARYNGEAL PAIN [None]
  - MYALGIA [None]
  - ASTHENIA [None]
  - NAUSEA [None]
  - DYSPNOEA [None]
  - ABDOMINAL PAIN [None]
  - HAEMOPTYSIS [None]
  - FAECES DISCOLOURED [None]
  - CHROMATURIA [None]
  - SWOLLEN TONGUE [None]
  - HEADACHE [None]
  - BLISTER [None]
  - TONGUE BITING [None]
  - EAR PAIN [None]
